FAERS Safety Report 8328100-4 (Version None)
Quarter: 2012Q2

REPORT INFORMATION
  Report Type: 
  Country: None (occurrence: None)
  Receive Date: 20120502
  Receipt Date: 20120424
  Transmission Date: 20120825
  Serious: Yes (Hospitalization)
  Sender: FDA-Public Use
  Company Number: PHHY2012AU034874

PATIENT
  Sex: Male

DRUGS (2)
  1. CLOZARIL [Suspect]
     Dosage: 375 MG, UNK
     Route: 048
     Dates: start: 20110901, end: 20120910
  2. CLOZARIL [Suspect]
     Dosage: 225 MG, UNK

REACTIONS (3)
  - TYPE 2 DIABETES MELLITUS [None]
  - MALAISE [None]
  - PSYCHOTIC DISORDER [None]
